FAERS Safety Report 7431138-2 (Version None)
Quarter: 2011Q2

REPORT INFORMATION
  Report Type: 
  Country: None (occurrence: None)
  Receive Date: 20110421
  Receipt Date: 20110420
  Transmission Date: 20111010
  Serious: Yes (Death, Life-Threatening)
  Sender: FDA-Public Use
  Company Number: JP-ABBOTT-09P-087-0588642-00

PATIENT
  Sex: Female

DRUGS (12)
  1. CANDESARTAN CILEXETIL [Concomitant]
     Indication: HYPERTENSION
     Route: 048
     Dates: end: 20090627
  2. FAMOTIDINE [Concomitant]
     Indication: GASTRITIS PROPHYLAXIS
     Route: 048
     Dates: end: 20090627
  3. HUMIRA [Suspect]
     Indication: RHEUMATOID ARTHRITIS
     Route: 058
     Dates: start: 20090221, end: 20090627
  4. ALFACALCIDOL [Concomitant]
     Indication: OSTEOPOROSIS
     Route: 048
     Dates: end: 20090627
  5. METHOTREXATE [Concomitant]
     Indication: RHEUMATOID ARTHRITIS
     Route: 048
     Dates: start: 20081011, end: 20090627
  6. EXTRACT FROM INFLAMMATORY RABBIT SKIN INOCULATED BY VACCINIA VIRUS [Concomitant]
     Indication: RHEUMATOID ARTHRITIS
     Route: 030
     Dates: end: 20090627
  7. REBAMIPIDE [Concomitant]
     Indication: GASTRITIS PROPHYLAXIS
     Route: 048
     Dates: end: 20090627
  8. LOXOPROFEN SODIUM [Concomitant]
     Indication: OSTEOPOROSIS
     Route: 048
     Dates: end: 20090627
  9. FELBINAC [Concomitant]
     Indication: RHEUMATOID ARTHRITIS
     Route: 061
     Dates: end: 20090627
  10. METHOTREXATE [Concomitant]
     Route: 048
     Dates: start: 20080818, end: 20080912
  11. PREDNISOLONE [Concomitant]
     Indication: RHEUMATOID ARTHRITIS
     Route: 048
     Dates: end: 20090627
  12. SODIUM RISEDRONATE HYDRATE [Concomitant]
     Indication: OSTEOPOROSIS
     Route: 048
     Dates: end: 20090627

REACTIONS (14)
  - RESPIRATORY FAILURE [None]
  - RENAL FAILURE ACUTE [None]
  - GASTROINTESTINAL HAEMORRHAGE [None]
  - PANCYTOPENIA [None]
  - CARDIAC HYPERTROPHY [None]
  - HYPOTENSION [None]
  - PANCREATITIS ACUTE [None]
  - LIVER DISORDER [None]
  - GASTRIC HAEMORRHAGE [None]
  - PNEUMOCYSTIS JIROVECI PNEUMONIA [None]
  - RHEUMATOID ARTHRITIS [None]
  - SPLENOMEGALY [None]
  - ADRENAL ATROPHY [None]
  - HEPATIC CIRRHOSIS [None]
